FAERS Safety Report 12144739 (Version 1)
Quarter: 2016Q1

REPORT INFORMATION
  Report Type: Spontaneous
  Country: US (occurrence: None)
  Receive Date: 20160303
  Receipt Date: 20160303
  Transmission Date: 20160526
  Serious: Yes (Other)
  Sender: FDA-Public Use
  Company Number: None

PATIENT
  Age: 66 Year
  Sex: Male

DRUGS (1)
  1. LISTERINE TOTAL CARE ZERO FRESH MINT [Suspect]
     Active Substance: SODIUM FLUORIDE
     Indication: DENTAL DISORDER PROPHYLAXIS

REACTIONS (3)
  - Oral mucosal exfoliation [None]
  - Oral disorder [None]
  - Oral discomfort [None]
